FAERS Safety Report 7701169 (Version 3)
Quarter: 2013Q4

REPORT INFORMATION
  Report Type: Spontaneous
  Country: CN (occurrence: None)
  Receive Date: 20101112
  Receipt Date: 20131002
  Transmission Date: 20140711
  Serious: Yes (Death, Life-Threatening)
  Sender: FDA-Public Use
  Company Number: CN-JNJFOC-20101004808

PATIENT
  Age: 35 Year
  Sex: Male
  Weight: 71 kg

DRUGS (1)
  1. DECITABINE [Suspect]
     Indication: MYELODYSPLASTIC SYNDROME
     Route: 042
     Dates: start: 20100925, end: 20100929

REACTIONS (7)
  - Lung infection [None]
  - Septic shock [None]
  - Pulmonary haemorrhage [None]
  - Respiratory failure [None]
  - Cardiac failure [None]
  - Agranulocytosis [None]
  - Fungal infection [None]
